FAERS Safety Report 24050892 (Version 2)
Quarter: 2024Q3

REPORT INFORMATION
  Report Type: Spontaneous
  Country: HK (occurrence: HK)
  Receive Date: 20240704
  Receipt Date: 20240711
  Transmission Date: 20241017
  Serious: Yes (Other)
  Sender: Visiox
  Company Number: HK-Santen Ltd-2024-HKG-006294

PATIENT
  Age: 28 Year
  Sex: Male

DRUGS (2)
  1. OMIDENEPAG ISOPROPYL [Suspect]
     Active Substance: OMIDENEPAG ISOPROPYL
     Indication: Open angle glaucoma
     Dosage: ONE DROP PER DAY BOTH EYES (1 IN 1 D)
     Route: 047
     Dates: start: 20240311, end: 20240406
  2. HYALURONATE SODIUM [Concomitant]
     Active Substance: HYALURONATE SODIUM
     Indication: Lagophthalmos
     Dosage: EYE LUBRICANTS (VISMED, EYE TOPICAL USE, FOR TREATMENT OF NOCTURNAL LAGOPHTHALMOS)
     Route: 061

REACTIONS (2)
  - Uveitis [Recovered/Resolved]
  - Ocular hyperaemia [Recovered/Resolved]
